FAERS Safety Report 16074005 (Version 1)
Quarter: 2019Q1

REPORT INFORMATION
  Report Type: Spontaneous
  Country: IL (occurrence: IL)
  Receive Date: 20190314
  Receipt Date: 20190314
  Transmission Date: 20190418
  Serious: Yes (Hospitalization, Other)
  Sender: FDA-Public Use
  Company Number: IL-ASTRAZENECA-2019SE21628

PATIENT
  Age: 4 Month
  Sex: Female

DRUGS (2)
  1. SYNAGIS [Suspect]
     Active Substance: PALIVIZUMAB
     Indication: ANTIVIRAL PROPHYLAXIS
     Route: 030
     Dates: start: 20190106
  2. URSODEOXYCHOLIC ACID [Concomitant]
     Active Substance: URSODIOL
     Indication: PRODUCT USED FOR UNKNOWN INDICATION

REACTIONS (14)
  - Pneumonia klebsiella [Recovering/Resolving]
  - Erythema [Recovering/Resolving]
  - Oxygen saturation decreased [Recovered/Resolved]
  - Pneumothorax [Recovering/Resolving]
  - Skin exfoliation [Recovering/Resolving]
  - Bradycardia [Recovered/Resolved]
  - Pneumonia moraxella [Recovering/Resolving]
  - Haemophilus infection [Recovering/Resolving]
  - Respiratory acidosis [Recovering/Resolving]
  - Inguinal hernia [Not Recovered/Not Resolved]
  - Respiratory syncytial virus infection [Recovering/Resolving]
  - General physical health deterioration [Recovering/Resolving]
  - Restlessness [Recovering/Resolving]
  - Obstructive airways disorder [Recovering/Resolving]

NARRATIVE: CASE EVENT DATE: 201901
